FAERS Safety Report 5119410-2 (Version None)
Quarter: 2006Q3

REPORT INFORMATION
  Report Type: 
  Country: None (occurrence: None)
  Receive Date: 20060928
  Receipt Date: 20060920
  Transmission Date: 20061208
  Serious: Yes (Other)
  Sender: FDA-Public Use
  Company Number: 230176

PATIENT
  Sex: Male

DRUGS (2)
  1. LUCENTIS [Suspect]
     Indication: MACULAR DEGENERATION
  2. MEDICATION (UNK INGREDIENT) (GENERIC COMPONENTS) [Concomitant]

REACTIONS (2)
  - CONDITION AGGRAVATED [None]
  - TREMOR [None]
